FAERS Safety Report 7022623-6 (Version None)
Quarter: 2010Q3

REPORT INFORMATION
  Report Type: 
  Country: None (occurrence: None)
  Receive Date: 20100930
  Receipt Date: 20100922
  Transmission Date: 20110219
  Serious: Yes (Hospitalization)
  Sender: FDA-Public Use
  Company Number: NL-MPIJNJ-2009-05253

PATIENT

DRUGS (10)
  1. VELCADE [Suspect]
     Indication: MULTIPLE MYELOMA
     Dosage: 2.80 MG, UNK
     Route: 042
     Dates: start: 20081117, end: 20090309
  2. VELCADE [Suspect]
     Dosage: 2.70 UNK, UNK
     Dates: start: 20090324, end: 20090331
  3. DEXAMETHASONE [Concomitant]
     Indication: MULTIPLE MYELOMA
     Dosage: UNK
     Dates: end: 20090331
  4. ZELITREX                           /01269701/ [Concomitant]
     Indication: PROPHYLAXIS
     Dosage: 1000 MG, UNK
     Route: 048
     Dates: start: 20081117
  5. DEPAKENE [Concomitant]
     Indication: EPILEPSY
     Dosage: 600 MG, UNK
     Route: 048
  6. GAMMAGLOBULIN                      /00025201/ [Concomitant]
     Indication: SUPPORTIVE CARE
     Dosage: UNK
     Route: 042
  7. AUGMENTIN '125' [Concomitant]
     Dosage: 2250 MG, UNK
     Route: 048
     Dates: start: 20090221, end: 20090228
  8. AUGMENTIN '125' [Concomitant]
     Dosage: 1875 MG, UNK
     Route: 048
     Dates: start: 20090309, end: 20090310
  9. FOLIC ACID [Concomitant]
     Indication: ANAEMIA
     Dosage: 5 MG, UNK
     Route: 048
  10. PENIDURAL                          /00000904/ [Concomitant]
     Indication: INFECTION PROPHYLAXIS
     Route: 030

REACTIONS (1)
  - CELLULITIS [None]
